FAERS Safety Report 22170116 (Version 2)
Quarter: 2023Q2

REPORT INFORMATION
  Report Type: Spontaneous
  Country: US (occurrence: US)
  Receive Date: 20230404
  Receipt Date: 20230512
  Transmission Date: 20230721
  Serious: No
  Sender: FDA-Public Use
  Company Number: US-VIIV HEALTHCARE LIMITED-US2023047849

PATIENT
  Age: 43 Year
  Sex: Male
  Weight: 107.1 kg

DRUGS (1)
  1. RUKOBIA [Suspect]
     Active Substance: FOSTEMSAVIR TROMETHAMINE
     Indication: HIV infection
     Dosage: 1 DF, BID
     Route: 048
     Dates: start: 20220909

REACTIONS (1)
  - Nausea [Recovered/Resolved]

NARRATIVE: CASE EVENT DATE: 20220909
